FAERS Safety Report 13073027 (Version 3)
Quarter: 2017Q1

REPORT INFORMATION
  Report Type: Spontaneous
  Country: US (occurrence: US)
  Receive Date: 20161229
  Receipt Date: 20170221
  Transmission Date: 20170428
  Serious: No
  Sender: FDA-Public Use
  Company Number: US-GLAXOSMITHKLINE-US2016192373

PATIENT
  Sex: Female

DRUGS (1)
  1. VENTOLIN HFA [Suspect]
     Active Substance: ALBUTEROL SULFATE
     Indication: ASTHMA
     Dosage: 1 PUFF(S), 6D
     Route: 055
     Dates: start: 1988

REACTIONS (5)
  - Drug ineffective [Not Recovered/Not Resolved]
  - Device use error [Not Recovered/Not Resolved]
  - Product quality issue [Unknown]
  - Asthma [Unknown]
  - Hypersensitivity [Unknown]
